FAERS Safety Report 8309040-3 (Version None)
Quarter: 2012Q2

REPORT INFORMATION
  Report Type: 
  Country: None (occurrence: None)
  Receive Date: 20120424
  Receipt Date: 20120417
  Transmission Date: 20120825
  Serious: Yes (Hospitalization, Other)
  Sender: FDA-Public Use
  Company Number: US-ELI_LILLY_AND_COMPANY-US201204006360

PATIENT
  Sex: Female

DRUGS (2)
  1. HUMULIN N [Suspect]
     Indication: DIABETES MELLITUS
     Dosage: 7 U, EACH MORNING
  2. HUMULIN N [Suspect]
     Dosage: 8 U, AT NIGHT

REACTIONS (5)
  - OEDEMA PERIPHERAL [None]
  - SKIN ULCER [None]
  - FALL [None]
  - IMPAIRED HEALING [None]
  - BLOOD GLUCOSE DECREASED [None]
